FAERS Safety Report 10412616 (Version 1)
Quarter: 2014Q3

REPORT INFORMATION
  Report Type: Spontaneous
  Country: GB (occurrence: GB)
  Receive Date: 20140827
  Receipt Date: 20140827
  Transmission Date: 20150326
  Serious: Yes (Life-Threatening, Hospitalization, Other)
  Sender: FDA-Public Use
  Company Number: GB-TEVA-502991ISR

PATIENT
  Age: 18 Year
  Sex: Male
  Weight: 63 kg

DRUGS (21)
  1. DEXAMETHASONE. [Concomitant]
     Active Substance: DEXAMETHASONE
  2. LANSOPRAZOLE. [Concomitant]
     Active Substance: LANSOPRAZOLE
  3. METOCLOPRAMIDE. [Suspect]
     Active Substance: METOCLOPRAMIDE
     Indication: VOMITING
     Dosage: 10MG STAT. GIVEN AT 2:30AM
     Route: 042
     Dates: start: 20131015, end: 20131015
  4. GRANISETRON [Concomitant]
     Active Substance: GRANISETRON
  5. ONDANSETRON [Concomitant]
     Active Substance: ONDANSETRON
  6. SODIUM DOCUSATE [Concomitant]
  7. DOMPERIDONE [Concomitant]
     Active Substance: DOMPERIDONE
  8. DOXORUBICIN [Concomitant]
     Active Substance: DOXORUBICIN
     Indication: NEOPLASM MALIGNANT
     Dates: start: 20130917
  9. CISPLATIN. [Concomitant]
     Active Substance: CISPLATIN
     Indication: NEOPLASM MALIGNANT
     Dates: start: 20130917
  10. LEVOMEPROMAZINE [Concomitant]
     Active Substance: LEVOMEPROMAZINE
  11. PREGABALIN. [Concomitant]
     Active Substance: PREGABALIN
  12. TAZOCIN [Concomitant]
     Active Substance: PIPERACILLIN SODIUM\TAZOBACTAM SODIUM
  13. ZOMORPH [Concomitant]
     Active Substance: MORPHINE SULFATE
  14. METHOTREXATE [Concomitant]
     Active Substance: METHOTREXATE
     Indication: NEOPLASM MALIGNANT
     Dates: start: 20130917
  15. DIFFLAM [Concomitant]
     Active Substance: BENZYDAMINE HYDROCHLORIDE
  16. FOLINIC ACID [Concomitant]
     Active Substance: LEUCOVORIN
  17. NAPROXEN. [Concomitant]
     Active Substance: NAPROXEN
  18. PARACETAMOL [Concomitant]
     Active Substance: ACETAMINOPHEN
  19. SEVREDOL [Concomitant]
     Active Substance: MORPHINE
  20. MOVICOL [Concomitant]
     Active Substance: POLYETHYLENE GLYCOL 3350\POTASSIUM CHLORIDE\SODIUM BICARBONATE\SODIUM CHLORIDE
  21. CO-AMOXICLAV [Concomitant]
     Active Substance: AMOXICILLIN\CLAVULANIC ACID

REACTIONS (4)
  - Methaemoglobinaemia [Recovered/Resolved]
  - Sinus tachycardia [Recovered/Resolved]
  - Hypoxia [Recovered/Resolved]
  - Pulmonary embolism [Recovered/Resolved]

NARRATIVE: CASE EVENT DATE: 20131015
